FAERS Safety Report 19727589 (Version 2)
Quarter: 2021Q3

REPORT INFORMATION
  Report Type: Spontaneous
  Country: CN (occurrence: CN)
  Receive Date: 20210820
  Receipt Date: 20210910
  Transmission Date: 20211014
  Serious: Yes (Other)
  Sender: FDA-Public Use
  Company Number: CN-BEH-2021134844

PATIENT
  Age: 75 Year
  Sex: Male

DRUGS (9)
  1. ALBUMIN HUMAN (INN) [Suspect]
     Active Substance: ALBUMIN HUMAN
     Indication: PROPHYLAXIS
     Route: 065
  2. ADEMETIONINE 1,4?BUTANEDISULFONATE [Suspect]
     Active Substance: ADEMETIONINE BUTANEDISULFONATE
     Indication: DRUG-INDUCED LIVER INJURY
     Route: 065
  3. URSODEOXYCHOLIC ACID [Suspect]
     Active Substance: URSODIOL
     Indication: DRUG-INDUCED LIVER INJURY
     Route: 065
  4. REDUCED GLUTATHIONE SODIUM [Suspect]
     Active Substance: GLUTATHIONE
     Indication: DRUG-INDUCED LIVER INJURY
     Route: 065
  5. ADEMETIONINE 1,4?BUTANEDISULFONATE [Suspect]
     Active Substance: ADEMETIONINE BUTANEDISULFONATE
     Indication: PROPHYLAXIS
  6. REDUCED GLUTATHIONE SODIUM [Suspect]
     Active Substance: GLUTATHIONE
     Indication: PROPHYLAXIS
  7. MAGNESIUM ISOGLYCYRRHIZINATE [Suspect]
     Active Substance: MAGNESIUM ISOGLYCYRRHIZINATE
     Indication: DRUG-INDUCED LIVER INJURY
     Route: 065
  8. MAGNESIUM ISOGLYCYRRHIZINATE [Suspect]
     Active Substance: MAGNESIUM ISOGLYCYRRHIZINATE
     Indication: PROPHYLAXIS
  9. URSODEOXYCHOLIC ACID [Suspect]
     Active Substance: URSODIOL
     Indication: PROPHYLAXIS

REACTIONS (1)
  - Hepatic function abnormal [Unknown]
